FAERS Safety Report 5024324-2 (Version None)
Quarter: 2006Q2

REPORT INFORMATION
  Report Type: 
  Country: None (occurrence: None)
  Receive Date: 20060613
  Receipt Date: 20060606
  Transmission Date: 20061013
  Serious: Yes (Hospitalization, Other)
  Sender: FDA-Public Use
  Company Number: US-ABBOTT-06P-163-0335148-00

PATIENT
  Sex: Female
  Weight: 77.18 kg

DRUGS (3)
  1. MERIDIA [Suspect]
     Indication: WEIGHT CONTROL
     Route: 048
     Dates: start: 20050601, end: 20050801
  2. MERIDIA [Suspect]
     Route: 048
     Dates: start: 20060322, end: 20060422
  3. ACETYLSALICYLIC ACID SRT [Concomitant]
     Indication: THROMBOSIS PROPHYLAXIS
     Route: 048
     Dates: start: 20060101

REACTIONS (3)
  - BREAST RECONSTRUCTION [None]
  - CHONDROPATHY [None]
  - DRUG INEFFECTIVE [None]
